FAERS Safety Report 23533301 (Version 2)
Quarter: 2024Q2

REPORT INFORMATION
  Report Type: Report from Study
  Country: CR (occurrence: CR)
  Receive Date: 20240216
  Receipt Date: 20240423
  Transmission Date: 20240716
  Serious: Yes (Other)
  Sender: FDA-Public Use
  Company Number: CR-002147023-NVSC2024CR029584

PATIENT
  Age: 52 Year
  Sex: Female

DRUGS (2)
  1. KISQALI [Suspect]
     Active Substance: RIBOCICLIB
     Indication: Breast cancer
     Dosage: 600 MG, QD
     Route: 048
     Dates: start: 20230822
  2. KISQALI [Suspect]
     Active Substance: RIBOCICLIB
     Dosage: 600 MG, QD
     Route: 048
     Dates: start: 20230912

REACTIONS (15)
  - Recurrent cancer [Unknown]
  - Immunodeficiency [Unknown]
  - Hypokalaemia [Unknown]
  - Decreased appetite [Unknown]
  - Nausea [Unknown]
  - Anaemia [Unknown]
  - Influenza [Unknown]
  - Hunger [Unknown]
  - Wound [Recovering/Resolving]
  - Nasopharyngitis [Unknown]
  - Hordeolum [Unknown]
  - Ocular discomfort [Unknown]
  - Abdominal pain upper [Unknown]
  - Eye pain [Recovered/Resolved]
  - Vision blurred [Unknown]

NARRATIVE: CASE EVENT DATE: 20230901
